FAERS Safety Report 4897661-X (Version None)
Quarter: 2006Q1

REPORT INFORMATION
  Report Type: 
  Country: None (occurrence: None)
  Receive Date: 20060130
  Receipt Date: 20060117
  Transmission Date: 20060701
  Serious: Yes (Other)
  Sender: FDA-Public Use
  Company Number: 2006008693

PATIENT
  Sex: Female

DRUGS (1)
  1. ZYRTEC [Suspect]
     Indication: ILL-DEFINED DISORDER

REACTIONS (5)
  - FOOT FRACTURE [None]
  - JOINT DISLOCATION [None]
  - NASOPHARYNGITIS [None]
  - SPINAL FUSION SURGERY [None]
  - SPINAL LAMINECTOMY [None]
